FAERS Safety Report 23680417 (Version 1)
Quarter: 2024Q1

REPORT INFORMATION
  Report Type: Spontaneous
  Country: US (occurrence: US)
  Receive Date: 20240328
  Receipt Date: 20240328
  Transmission Date: 20240410
  Serious: Yes (Hospitalization)
  Sender: FDA-Public Use
  Company Number: US-BEH-2024167819

PATIENT
  Age: 73 Year
  Sex: Female

DRUGS (5)
  1. PRIVIGEN [Suspect]
     Active Substance: HUMAN IMMUNOGLOBULIN G
     Indication: Immunodeficiency common variable
     Dosage: 10 GRAM, QOW (EVERY 2 WEEKS)
     Route: 042
     Dates: start: 202311
  2. PRIVIGEN [Suspect]
     Active Substance: HUMAN IMMUNOGLOBULIN G
     Indication: Humoral immune defect
     Dosage: 20 GRAM, QOW (EVERY 2 WEEKS)
     Route: 042
     Dates: start: 202311
  3. HEPARIN [Concomitant]
     Active Substance: HEPARIN SODIUM
  4. EPINEPHRINE [Concomitant]
     Active Substance: EPINEPHRINE
  5. SOLU-MEDROL [Concomitant]
     Active Substance: METHYLPREDNISOLONE SODIUM SUCCINATE

REACTIONS (3)
  - Bronchiolitis [Unknown]
  - Bronchial secretion retention [Unknown]
  - Dyspnoea [Unknown]

NARRATIVE: CASE EVENT DATE: 20240201
